FAERS Safety Report 18645456 (Version 1)
Quarter: 2020Q4

REPORT INFORMATION
  Report Type: Spontaneous
  Country: US (occurrence: US)
  Receive Date: 20201222
  Receipt Date: 20201222
  Transmission Date: 20210114
  Serious: Yes (Hospitalization)
  Sender: FDA-Public Use
  Company Number: US-ROCHE-2736437

PATIENT
  Sex: Female

DRUGS (1)
  1. ESBRIET [Suspect]
     Active Substance: PIRFENIDONE
     Indication: IDIOPATHIC PULMONARY FIBROSIS
     Dosage: 267 MG, 1 TABLET TWICE DAILY WITH FOOD;ONGOING:YES
     Route: 048
     Dates: start: 20190523

REACTIONS (3)
  - Intentional product misuse [Unknown]
  - Pneumonia [Unknown]
  - Off label use [Unknown]
